FAERS Safety Report 23683939 (Version 6)
Quarter: 2024Q2

REPORT INFORMATION
  Report Type: Report from Study
  Country: US (occurrence: US)
  Receive Date: 20240328
  Receipt Date: 20240607
  Transmission Date: 20240716
  Serious: Yes (Hospitalization, Other)
  Sender: FDA-Public Use
  Company Number: US-GSKCCFUS-Case-01965482_AE-109242

PATIENT

DRUGS (4)
  1. MOMELOTINIB [Suspect]
     Active Substance: MOMELOTINIB
     Indication: Myelofibrosis
     Dosage: UNK
     Dates: start: 20240312
  2. MOMELOTINIB [Suspect]
     Active Substance: MOMELOTINIB
     Dosage: UNK UNK, QD
  3. MOMELOTINIB [Suspect]
     Active Substance: MOMELOTINIB
     Dosage: 200 MG, QD
  4. MOMELOTINIB [Suspect]
     Active Substance: MOMELOTINIB
     Dosage: 200 MG, QD

REACTIONS (17)
  - Hospitalisation [Not Recovered/Not Resolved]
  - Nasopharyngitis [Unknown]
  - Pyrexia [Recovered/Resolved]
  - Dyspnoea [Not Recovered/Not Resolved]
  - Renal impairment [Unknown]
  - Sepsis [Unknown]
  - Fatigue [Not Recovered/Not Resolved]
  - Platelet count decreased [Unknown]
  - Exercise tolerance decreased [Unknown]
  - Blood creatinine increased [Unknown]
  - Nausea [Not Recovered/Not Resolved]
  - Loss of personal independence in daily activities [Unknown]
  - Haemoglobin increased [Not Recovered/Not Resolved]
  - Paraesthesia [Not Recovered/Not Resolved]
  - Productive cough [Unknown]
  - Chills [Recovered/Resolved]
  - Spleen disorder [Unknown]

NARRATIVE: CASE EVENT DATE: 20240313
